FAERS Safety Report 20219265 (Version 3)
Quarter: 2022Q1

REPORT INFORMATION
  Report Type: Spontaneous
  Country: HR (occurrence: HR)
  Receive Date: 20211222
  Receipt Date: 20220107
  Transmission Date: 20220423
  Serious: Yes (Hospitalization)
  Sender: FDA-Public Use
  Company Number: HR-AMERICAN REGENT INC-2021003330

PATIENT
  Age: 32 Year
  Sex: Female
  Weight: 60 kg

DRUGS (4)
  1. FERINJECT [Suspect]
     Active Substance: FERRIC CARBOXYMALTOSE
     Indication: Blood iron decreased
     Dosage: 1 UNKNOWN
     Route: 042
     Dates: start: 20160525, end: 20160525
  2. FERINJECT [Suspect]
     Active Substance: FERRIC CARBOXYMALTOSE
     Indication: Iron deficiency
  3. VENOFER [Suspect]
     Active Substance: IRON SUCROSE
     Indication: Blood iron decreased
     Dosage: 1 UNKNOWN
     Route: 042
     Dates: start: 20160525, end: 20160525
  4. VENOFER [Suspect]
     Active Substance: IRON SUCROSE
     Indication: Iron deficiency

REACTIONS (3)
  - Pain [Recovered/Resolved]
  - Syncope [Unknown]
  - Abdominal pain [Unknown]

NARRATIVE: CASE EVENT DATE: 20160501
